FAERS Safety Report 4885393-3 (Version None)
Quarter: 2005Q4

REPORT INFORMATION
  Report Type: 
  Country: None (occurrence: None)
  Receive Date: 20051222
  Receipt Date: 20051024
  Transmission Date: 20060501
  Serious: No
  Sender: FDA-Public Use
  Company Number: SP00514

PATIENT
  Age: 53 Year
  Sex: Female
  Weight: 48.9885 kg

DRUGS (7)
  1. XIFAXAN [Suspect]
     Indication: DIARRHOEA
     Dosage: 200MG/TID, ORAL
     Route: 048
     Dates: start: 20051020
  2. ZELNORM [Concomitant]
  3. COMBIPATCH [Concomitant]
  4. ZYRTEC [Concomitant]
  5. LUNESTA (TABLETS0 [Concomitant]
  6. VITAMINS [Concomitant]
  7. MINERAL TAB [Concomitant]

REACTIONS (2)
  - INSOMNIA [None]
  - PALPITATIONS [None]
